FAERS Safety Report 4352239-1 (Version None)
Quarter: 2004Q2

REPORT INFORMATION
  Report Type: 
  Country: None (occurrence: None)
  Receive Date: 20040428
  Receipt Date: 20040407
  Transmission Date: 20050107
  Serious: Yes (Death, Hospitalization)
  Sender: FDA-Public Use
  Company Number: EWC040238147

PATIENT
  Age: 76 Year
  Sex: Female
  Weight: 53 kg

DRUGS (13)
  1. GEMCITABINE HYDROCHLORIDE-IV (GEMCITABINE) [Suspect]
     Indication: NON-SMALL CELL LUNG CANCER
     Dosage: 1000 MG/M2/3 OTHER
     Route: 050
     Dates: start: 20030804, end: 20040128
  2. RIFINAH [Concomitant]
  3. MYAMBUTOL (ETHAMBUTOL DIHYROCHLORIDE) [Concomitant]
  4. PERSANTIN [Concomitant]
  5. WARFARIN SODIUM [Concomitant]
  6. SUPRADYN [Concomitant]
  7. DULCOLAX [Concomitant]
  8. NORVASC [Concomitant]
  9. BONEFOS (CLODRONATE DISODIUM) [Concomitant]
  10. LEVOFLOXACIN [Concomitant]
  11. STILNOX (ZOLPIDEM) [Concomitant]
  12. DURAGESIC [Concomitant]
  13. IRESSA [Concomitant]

REACTIONS (6)
  - ASTHENIA [None]
  - DECREASED APPETITE [None]
  - DEPRESSED LEVEL OF CONSCIOUSNESS [None]
  - DISEASE PROGRESSION [None]
  - LUNG CANCER METASTATIC [None]
  - PULMONARY EMBOLISM [None]
